FAERS Safety Report 10239762 (Version 3)
Quarter: 2014Q2

REPORT INFORMATION
  Report Type: Report from Study
  Country: US (occurrence: US)
  Receive Date: 20140616
  Receipt Date: 20140625
  Transmission Date: 20141212
  Serious: Yes (Hospitalization, Other)
  Sender: FDA-Public Use
  Company Number: US-MILLENNIUM-2014MPI000050

PATIENT
  Age: 69 Year
  Sex: Male
  Weight: 72.2 kg

DRUGS (26)
  1. MLN0002 [Suspect]
     Indication: CROHN^S DISEASE
     Dosage: 300 MG, Q4WEEKS
     Route: 042
     Dates: start: 20100312, end: 20131209
  2. NITRO-DUR [Concomitant]
     Dosage: 0.4 MG/HR, PRN
     Route: 048
  3. ATENOLOL [Concomitant]
     Indication: HYPERTENSION
     Dosage: 25 MG, ONE TABLET BY MOUTH DAILY
     Route: 048
  4. SINEMET CR [Concomitant]
     Dosage: 25-100 MG, 1-2 TABS AT HS
     Route: 048
  5. OMEGA-3                            /01168901/ [Concomitant]
     Dosage: 1200 MG, CAPSULES
     Route: 048
  6. VITAMIN D                          /00107901/ [Concomitant]
     Dosage: 50000 IU, UNK
  7. MORPHINE SULFATE [Concomitant]
     Dosage: 15 MG, UNK TB 12
     Route: 048
  8. MAGNESIUM [Concomitant]
     Dosage: 250 MG, BID
     Route: 048
  9. CALCIUM [Concomitant]
     Dosage: 833 MG, UNK
     Route: 048
  10. B12                                /00056201/ [Concomitant]
     Dosage: 1 INJECTION QM
  11. FENOFIBRATE [Concomitant]
     Indication: HYPERLIPIDAEMIA
     Dosage: 160 MG, 1 TABLETS
     Route: 048
  12. TESTOSTERONE [Concomitant]
     Dosage: 200 MG, Q4WEEKS
     Route: 030
  13. ATIVAN [Concomitant]
     Indication: ANXIETY
     Dosage: 1 MG, 1 TAB
     Route: 048
  14. ASPIRIN [Concomitant]
     Dosage: 81 MG, BID
  15. MULTIVITAMIN                       /00097801/ [Concomitant]
     Dosage: 1 TABLET
     Route: 048
  16. IMDUR [Concomitant]
     Dosage: 120 MG, 1 TABLET
     Route: 048
  17. IMDUR [Concomitant]
     Dosage: 180 MG, QD
     Route: 048
  18. LIPITOR [Concomitant]
     Dosage: 80 MG, TABLET
     Route: 048
  19. NORVASC [Concomitant]
     Dosage: 2.5 MG, QD
     Route: 048
  20. RANEXA [Concomitant]
     Dosage: 500 MG, BID
     Route: 048
  21. VERSED [Concomitant]
     Indication: SEDATION
     Dosage: 4 MG, UNK
     Route: 042
  22. VERSED [Concomitant]
     Indication: ANGIOGRAM
  23. DURAGESIC                          /00174601/ [Concomitant]
     Indication: SEDATION
     Dosage: 500 MCG, Q1HR
     Route: 042
  24. DURAGESIC                          /00174601/ [Concomitant]
     Indication: ANGIOGRAM
     Dosage: 200 MCG, UNK
     Route: 042
  25. LIDOCAINE [Concomitant]
     Indication: SEDATION
     Dosage: 10 ML, UNK
  26. LIDOCAINE [Concomitant]
     Indication: ANGIOGRAM

REACTIONS (2)
  - Intestinal obstruction [Recovered/Resolved]
  - Crohn^s disease [Recovered/Resolved]
